FAERS Safety Report 24979055 (Version 8)
Quarter: 2025Q2

REPORT INFORMATION
  Report Type: Report from Study
  Country: CA (occurrence: CA)
  Receive Date: 20250218
  Receipt Date: 20250604
  Transmission Date: 20250716
  Serious: Yes (Other)
  Sender: JOHNSON AND JOHNSON
  Company Number: CA-JNJFOC-20241057585

PATIENT
  Age: 39 Year
  Sex: Female
  Weight: 71 kg

DRUGS (8)
  1. REMICADE [Suspect]
     Active Substance: INFLIXIMAB
     Indication: Crohn^s disease
     Route: 041
     Dates: start: 20170920
  2. REMICADE [Suspect]
     Active Substance: INFLIXIMAB
     Indication: Colitis ulcerative
     Dosage: 100 MG/VIAL
     Route: 041
     Dates: start: 20170825
  3. REMICADE [Suspect]
     Active Substance: INFLIXIMAB
     Route: 041
     Dates: start: 20220718
  4. REMICADE [Suspect]
     Active Substance: INFLIXIMAB
     Route: 041
     Dates: start: 20241204
  5. REMICADE [Suspect]
     Active Substance: INFLIXIMAB
     Route: 041
     Dates: start: 20250118
  6. REMICADE [Suspect]
     Active Substance: INFLIXIMAB
     Route: 041
     Dates: start: 20170920
  7. REMICADE [Suspect]
     Active Substance: INFLIXIMAB
     Route: 041
     Dates: start: 20250430
  8. AMOXIL [Suspect]
     Active Substance: AMOXICILLIN
     Indication: Influenza
     Route: 065

REACTIONS (18)
  - Varicose veins pelvic [Not Recovered/Not Resolved]
  - Crohn^s disease [Not Recovered/Not Resolved]
  - Colitis ulcerative [Recovering/Resolving]
  - Pelvic congestion [Unknown]
  - Fatigue [Recovered/Resolved]
  - Postoperative wound infection [Not Recovered/Not Resolved]
  - Sinusitis [Not Recovered/Not Resolved]
  - Tonsillitis [Not Recovered/Not Resolved]
  - Ear infection [Not Recovered/Not Resolved]
  - Hypersensitivity [Recovering/Resolving]
  - Influenza [Recovering/Resolving]
  - Urticaria [Recovering/Resolving]
  - Viral upper respiratory tract infection [Recovering/Resolving]
  - Dyspnoea [Recovered/Resolved]
  - Hand-foot-and-mouth disease [Unknown]
  - Abdominal pain [Recovered/Resolved]
  - Diarrhoea [Recovered/Resolved]
  - Incorrect drug administration rate [Unknown]

NARRATIVE: CASE EVENT DATE: 20240925
